FAERS Safety Report 13681555 (Version 1)
Quarter: 2017Q2

REPORT INFORMATION
  Report Type: Spontaneous
  Country: US (occurrence: US)
  Receive Date: 20170623
  Receipt Date: 20170623
  Transmission Date: 20170830
  Serious: No
  Sender: FDA-Public Use
  Company Number: US-AUROBINDO-AUR-APL-2014-11430

PATIENT
  Age: 67 Year
  Sex: Female
  Weight: 60 kg

DRUGS (2)
  1. PENICILLIN V POTASSIUM TABLETS USP 500MG [Suspect]
     Active Substance: PENICILLIN V POTASSIUM
     Indication: JAW DISORDER
     Dosage: 1 DF, FOUR TIMES/DAY
     Route: 048
     Dates: start: 20141015
  2. PENICILLIN V POTASSIUM TABLETS USP 500MG [Suspect]
     Active Substance: PENICILLIN V POTASSIUM
     Indication: INFECTION

REACTIONS (2)
  - Gastrointestinal sounds abnormal [Recovered/Resolved]
  - Abdominal discomfort [Recovered/Resolved]

NARRATIVE: CASE EVENT DATE: 20141018
